FAERS Safety Report 10080859 (Version 1)
Quarter: 2014Q2

REPORT INFORMATION
  Report Type: Spontaneous
  Country: US (occurrence: US)
  Receive Date: 20140416
  Receipt Date: 20140416
  Transmission Date: 20141212
  Serious: No
  Sender: FDA-Public Use
  Company Number: US-009507513-1404USA005101

PATIENT
  Age: 26 Year
  Sex: Female

DRUGS (7)
  1. BETAMETHASONE [Suspect]
     Indication: PULMONARY MASS
  2. BETAMETHASONE [Suspect]
     Indication: HYDROPS FOETALIS
  3. GENERAL ANESTHESIA (UNSPECIFIED) [Suspect]
     Indication: PNEUMONECTOMY
  4. GENERAL ANESTHESIA (UNSPECIFIED) [Suspect]
     Indication: FOETAL THERAPEUTIC PROCEDURE
  5. MAGNESIUM SULFATE [Suspect]
     Indication: UTERINE ATONY
     Route: 042
  6. INDOCIN I.V. [Suspect]
     Indication: UTERINE ATONY
     Route: 042
  7. NIFEDIPINE [Suspect]
     Indication: UTERINE ATONY

REACTIONS (1)
  - Exposure during pregnancy [Recovered/Resolved]
